FAERS Safety Report 17597658 (Version 2)
Quarter: 2020Q2

REPORT INFORMATION
  Report Type: Report from Study
  Country: CO (occurrence: CO)
  Receive Date: 20200330
  Receipt Date: 20200407
  Transmission Date: 20200713
  Serious: Yes (Other)
  Sender: FDA-Public Use
  Company Number: PHHY2018CO169972

PATIENT
  Age: 34 Year
  Sex: Female
  Weight: 54 kg

DRUGS (2)
  1. VOTRIENT [Suspect]
     Active Substance: PAZOPANIB HYDROCHLORIDE
     Indication: METASTATIC RENAL CELL CARCINOMA
     Dosage: 800 MG, QD (2 OF 400 MG, AT 11 AM)
     Route: 048
     Dates: start: 201711
  2. VOTRIENT [Suspect]
     Active Substance: PAZOPANIB HYDROCHLORIDE
     Dosage: 400 MG, Q12H
     Route: 048

REACTIONS (13)
  - Malaise [Unknown]
  - Pain [Unknown]
  - Decreased appetite [Unknown]
  - Hypertension [Unknown]
  - Influenza [Unknown]
  - Bone lesion [Unknown]
  - Dysstasia [Unknown]
  - Hypothyroidism [Unknown]
  - Metastases to muscle [Unknown]
  - Feeling cold [Unknown]
  - Vomiting [Unknown]
  - Nodule [Unknown]
  - Peripheral swelling [Not Recovered/Not Resolved]

NARRATIVE: CASE EVENT DATE: 201901
